FAERS Safety Report 13041965 (Version 4)
Quarter: 2017Q1

REPORT INFORMATION
  Report Type: Spontaneous
  Country: US (occurrence: US)
  Receive Date: 20161219
  Receipt Date: 20170324
  Transmission Date: 20170428
  Serious: Yes (Death, Life-Threatening, Hospitalization, Disabling, Other)
  Sender: FDA-Public Use
  Company Number: US-009507513-1612USA008732

PATIENT
  Age: 68 Year
  Sex: Female

DRUGS (12)
  1. CALCIUM (UNSPECIFIED) [Concomitant]
     Active Substance: CALCIUM
  2. DULERA [Concomitant]
     Active Substance: FORMOTEROL FUMARATE DIHYDRATE\MOMETASONE FUROATE
  3. ROPINIROLE. [Concomitant]
     Active Substance: ROPINIROLE
  4. ACYCLOVIR. [Concomitant]
     Active Substance: ACYCLOVIR
  5. PROCHLORPERAZINE MALEATE. [Concomitant]
     Active Substance: PROCHLORPERAZINE MALEATE
  6. KEYTRUDA [Suspect]
     Active Substance: PEMBROLIZUMAB
     Dosage: 200 MG, UNK
     Route: 042
     Dates: start: 20161128
  7. KEYTRUDA [Suspect]
     Active Substance: PEMBROLIZUMAB
     Indication: WALDENSTROM^S MACROGLOBULINAEMIA
     Dosage: 200 MG, UNK
     Route: 042
     Dates: start: 20160915
  8. VITAMIN D [Concomitant]
     Active Substance: CHOLECALCIFEROL
  9. MAGNESIUM SULFATE. [Concomitant]
     Active Substance: MAGNESIUM SULFATE
  10. POTASSIUM CHLORIDE. [Concomitant]
     Active Substance: POTASSIUM CHLORIDE
  11. CYTARABINE. [Concomitant]
     Active Substance: CYTARABINE
     Dosage: UNK
     Route: 037
  12. LASIX [Concomitant]
     Active Substance: FUROSEMIDE

REACTIONS (15)
  - Thyroid mass [Unknown]
  - Cellulitis [Unknown]
  - Lymphadenopathy [Unknown]
  - Fatigue [Unknown]
  - Muscle atrophy [Unknown]
  - Product use issue [Unknown]
  - Renal failure [Fatal]
  - Respiratory failure [Fatal]
  - Hypotension [Unknown]
  - Pleural effusion [Recovering/Resolving]
  - Urosepsis [Unknown]
  - Oedema peripheral [Unknown]
  - Waldenstrom^s macroglobulinaemia [Recovering/Resolving]
  - Anaemia [Unknown]
  - Deep vein thrombosis [Unknown]

NARRATIVE: CASE EVENT DATE: 2016
